FAERS Safety Report 6618823-7 (Version None)
Quarter: 2010Q1

REPORT INFORMATION
  Report Type: 
  Country: None (occurrence: None)
  Receive Date: 20100305
  Receipt Date: 20100305
  Transmission Date: 20100710
  Serious: Yes (Other)
  Sender: FDA-Public Use
  Company Number: None

PATIENT
  Age: 61 Year
  Sex: Male
  Weight: 63.5036 kg

DRUGS (1)
  1. FENOGLIDE [Suspect]
     Indication: BLOOD CHOLESTEROL INCREASED
     Dosage: 1X120MG EVERY DAY PO
     Route: 048
     Dates: start: 20100128, end: 20100228

REACTIONS (2)
  - MYALGIA [None]
  - RASH [None]
